FAERS Safety Report 6583835-9 (Version None)
Quarter: 2010Q1

REPORT INFORMATION
  Report Type: 
  Country: None (occurrence: None)
  Receive Date: 20100216
  Receipt Date: 20091201
  Transmission Date: 20100710
  Serious: No
  Sender: FDA-Public Use
  Company Number: US-ABBOTT-09P-163-0599944-00

PATIENT
  Sex: Male
  Weight: 97.61 kg

DRUGS (2)
  1. SIMCOR [Suspect]
     Indication: HIGH DENSITY LIPOPROTEIN DECREASED
     Dosage: 1 - 500/20 MG TAB NIGHTLY
     Dates: start: 20090922
  2. TRILIPIX [Concomitant]
     Indication: DRUG USE FOR UNKNOWN INDICATION
     Route: 048

REACTIONS (3)
  - ERYTHEMA [None]
  - FEELING HOT [None]
  - SKIN WARM [None]
